FAERS Safety Report 14003902 (Version 2)
Quarter: 2019Q2

REPORT INFORMATION
  Report Type: Spontaneous
  Country: US (occurrence: US)
  Receive Date: 20170922
  Receipt Date: 20190502
  Transmission Date: 20190711
  Serious: No
  Sender: FDA-Public Use
  Company Number: US-JNJFOC-20170718754

PATIENT
  Sex: Male
  Weight: 86.18 kg

DRUGS (3)
  1. FENTANYL TRANSDERMAL SYSTEM [Suspect]
     Active Substance: FENTANYL
     Indication: ARTHRALGIA
     Route: 062
  2. OXYCODONE [Concomitant]
     Active Substance: OXYCODONE
     Route: 065
  3. DURAGESIC [Suspect]
     Active Substance: FENTANYL
     Indication: ARTHRALGIA
     Route: 062
     Dates: start: 2012

REACTIONS (7)
  - Product complaint [Unknown]
  - Memory impairment [Not Recovered/Not Resolved]
  - Underdose [Unknown]
  - Pain [Unknown]
  - Product use complaint [Unknown]
  - Arthropathy [Unknown]
  - Product physical issue [Unknown]
